FAERS Safety Report 5232886-5 (Version None)
Quarter: 2007Q1

REPORT INFORMATION
  Report Type: 
  Country: None (occurrence: None)
  Receive Date: 20070207
  Receipt Date: 20070129
  Transmission Date: 20070707
  Serious: Yes (Other)
  Sender: FDA-Public Use
  Company Number: US-ELI_LILLY_AND_COMPANY-US200612004471

PATIENT

DRUGS (3)
  1. FORTEO [Suspect]
     Indication: OSTEOPOROSIS
     Dosage: UNK, UNK
     Dates: start: 20051213
  2. CALCIUM [Concomitant]
     Dosage: 2000 MG, DAILY (1/D)
  3. MULTI-VITAMIN [Concomitant]
     Dosage: 2 D/F, DAILY (1/D)

REACTIONS (2)
  - JOINT INJURY [None]
  - ROAD TRAFFIC ACCIDENT [None]
